FAERS Safety Report 4373459-6 (Version None)
Quarter: 2004Q1

REPORT INFORMATION
  Report Type: 
  Country: None (occurrence: None)
  Receive Date: 20040305
  Receipt Date: 20031217
  Transmission Date: 20041129
  Serious: Yes (Other)
  Sender: FDA-Public Use
  Company Number: 2003UW16814

PATIENT
  Age: 78 Year
  Sex: Female
  Weight: 104.3273 kg

DRUGS (8)
  1. CRESTOR [Suspect]
     Indication: HYPERCHOLESTEROLAEMIA
     Dosage: 10 MG PO
     Route: 048
  2. TOPROL-XL [Concomitant]
  3. ASPIRIN [Concomitant]
  4. HUMULIN 70/30 [Concomitant]
  5. NORVASC [Concomitant]
  6. TRIAMTERENE [Concomitant]
  7. ISOSORBIDE [Concomitant]
  8. METOCLOPRAMIDE [Concomitant]

REACTIONS (2)
  - CONFUSIONAL STATE [None]
  - HYPERHIDROSIS [None]
